FAERS Safety Report 9532948 (Version 1)
Quarter: 2013Q3

REPORT INFORMATION
  Report Type: Spontaneous
  Country: US (occurrence: US)
  Receive Date: 20130918
  Receipt Date: 20130918
  Transmission Date: 20140515
  Serious: No
  Sender: FDA-Public Use
  Company Number: US-PURDUE-USA-2011-0076523

PATIENT
  Age: 85 Year
  Sex: Female

DRUGS (1)
  1. BUTRANS [Suspect]
     Indication: OSTEOARTHRITIS
     Dosage: 20 MCG, Q1H
     Route: 062
     Dates: start: 20110727

REACTIONS (3)
  - Application site pruritus [Not Recovered/Not Resolved]
  - Application site rash [Not Recovered/Not Resolved]
  - Application site erythema [Not Recovered/Not Resolved]
